FAERS Safety Report 17222892 (Version 3)
Quarter: 2020Q1

REPORT INFORMATION
  Report Type: Spontaneous
  Country: JP (occurrence: JP)
  Receive Date: 20200102
  Receipt Date: 20200205
  Transmission Date: 20200409
  Serious: Yes (Other)
  Sender: FDA-Public Use
  Company Number: JP-ASTELLAS-2019JP024242

PATIENT
  Age: 7 Decade
  Sex: Female

DRUGS (3)
  1. ITRIZOLE [Interacting]
     Active Substance: ITRACONAZOLE
     Indication: FUNGAL INFECTION
     Dosage: UNK UNK, UNKNOWN FREQ.
     Route: 041
     Dates: start: 20191024, end: 20191101
  2. XOSPATA [Suspect]
     Active Substance: GILTERITINIB
     Indication: ACUTE MYELOID LEUKAEMIA
     Route: 048
     Dates: start: 20191012, end: 20191111
  3. XOSPATA [Interacting]
     Active Substance: GILTERITINIB
     Route: 048
     Dates: start: 20191112, end: 20191216

REACTIONS (6)
  - Pneumonia [Recovered/Resolved]
  - Blast cell count increased [Recovering/Resolving]
  - Hepatic function abnormal [Recovered/Resolved]
  - Drug interaction [Unknown]
  - Neutrophil count decreased [Not Recovered/Not Resolved]
  - Platelet count decreased [Not Recovered/Not Resolved]

NARRATIVE: CASE EVENT DATE: 20191031
